FAERS Safety Report 7355826 (Version 4)
Quarter: 2017Q3

REPORT INFORMATION
  Report Type: Report from Study
  Country: IT (occurrence: IT)
  Receive Date: 20100415
  Receipt Date: 20170922
  Transmission Date: 20171128
  Serious: Yes (Death, Other)
  Sender: FDA-Public Use
  Company Number: IT-CELGENEUS-083-21880-10040635

PATIENT

DRUGS (9)
  1. THALIDOMIDE [Suspect]
     Active Substance: THALIDOMIDE
     Dosage: EITHER 50MG/DAY, 100 MG/DAY OR 50MG/2DAYS FOR ANNUATION SCHEDULE
     Route: 048
  2. RECOMBINANT HUMAN ERYTHROPOEITIN [Concomitant]
     Indication: PRODUCT USED FOR UNKNOWN INDICATION
     Route: 050
  3. G-CSF [Concomitant]
     Active Substance: GRANULOCYTE COLONY-STIMULATING FACTOR NOS
     Indication: PRODUCT USED FOR UNKNOWN INDICATION
     Route: 050
  4. PREDNISONE. [Suspect]
     Active Substance: PREDNISONE
     Indication: PLASMA CELL MYELOMA
     Dosage: 2 MILLIGRAM/KILOGRAM
     Route: 048
  5. ASPIRIN. [Concomitant]
     Active Substance: ASPIRIN
     Indication: THROMBOSIS PROPHYLAXIS
     Dosage: 100 MILLIGRAM
     Route: 065
  6. REVLIMID [Suspect]
     Active Substance: LENALIDOMIDE
     Dosage: 10, 7.5, 5 OR 2.5MG/DAYS FOR ANNUATION SCHEDULE
     Route: 048
  7. THALIDOMIDE [Suspect]
     Active Substance: THALIDOMIDE
     Indication: PLASMA CELL MYELOMA
     Dosage: EITHER 50MG/DAY OR 100 MG/DAY
     Route: 048
  8. REVLIMID [Suspect]
     Active Substance: LENALIDOMIDE
     Indication: PLASMA CELL MYELOMA
     Dosage: 10 MILLIGRAM
     Route: 048
  9. MELPHALAN. [Suspect]
     Active Substance: MELPHALAN
     Indication: PLASMA CELL MYELOMA
     Dosage: .18 MILLIGRAM/KILOGRAM
     Route: 048

REACTIONS (23)
  - Plasma cell myeloma [Fatal]
  - Haematotoxicity [Unknown]
  - Infection [Fatal]
  - Febrile neutropenia [Unknown]
  - Blood creatinine increased [Unknown]
  - Pneumonia [Fatal]
  - Septic shock [Fatal]
  - Acute pulmonary oedema [Unknown]
  - Meningitis [Fatal]
  - Adverse event [Unknown]
  - Metabolic disorder [Unknown]
  - Thrombocytopenia [Unknown]
  - Atelectasis [Unknown]
  - Neutropenia [Unknown]
  - Fatigue [Unknown]
  - Sudden death [Fatal]
  - Anaemia [Unknown]
  - Gastrointestinal disorder [Unknown]
  - Neurotoxicity [Unknown]
  - Transient ischaemic attack [Unknown]
  - Pyrexia [Unknown]
  - Deep vein thrombosis [Unknown]
  - Dizziness [Unknown]
